FAERS Safety Report 5406158-X (Version None)
Quarter: 2007Q3

REPORT INFORMATION
  Report Type: 
  Country: None (occurrence: None)
  Receive Date: 20070806
  Receipt Date: 20070730
  Transmission Date: 20080115
  Serious: No
  Sender: FDA-Public Use
  Company Number: US-ASTRAZENECA-2007UW17179

PATIENT
  Age: 22 Year
  Sex: Female

DRUGS (6)
  1. SYMBICORT [Suspect]
     Route: 055
  2. ATIVAN [Concomitant]
     Indication: ANXIETY
  3. CITALOPRAM HYDROBROMIDE [Concomitant]
     Indication: ANXIETY
  4. SINGULAIR [Concomitant]
     Indication: MULTIPLE ALLERGIES
  5. ALBUTEROL [Concomitant]
     Indication: ASTHMA
  6. CYCLOBENZAPRINE HCL [Concomitant]

REACTIONS (2)
  - ANXIETY [None]
  - CHEST PAIN [None]
